FAERS Safety Report 15298931 (Version 1)
Quarter: 2018Q3

REPORT INFORMATION
  Report Type: Spontaneous
  Country: US (occurrence: US)
  Receive Date: 20180808
  Receipt Date: 20180808
  Transmission Date: 20181010
  Serious: Yes (Disabling)
  Sender: FDA-Public Use
  Company Number: None

PATIENT
  Age: 68 Year
  Sex: Female
  Weight: 67.5 kg

DRUGS (8)
  1. VITAMIN D3 [Concomitant]
     Active Substance: CHOLECALCIFEROL
  2. KRILL OIL [Concomitant]
     Active Substance: DIETARY SUPPLEMENT
  3. MOXIFLOXACIN GENERIC EYE DROPS [Suspect]
     Active Substance: MOXIFLOXACIN HYDROCHLORIDE
     Indication: EYE INFECTION
     Dosage: ?          QUANTITY:2 GTT DROP(S);?
     Route: 047
  4. TMG [Concomitant]
  5. MK7 [Concomitant]
  6. ACEROLA VITAMIN C [Concomitant]
  7. METHYLATED B COMPLEX [Concomitant]
  8. MG [Concomitant]
     Active Substance: MAGNESIUM

REACTIONS (14)
  - Nail disorder [None]
  - Arthralgia [None]
  - Hypersexuality [None]
  - Joint noise [None]
  - Seizure [None]
  - Insomnia [None]
  - Abnormal dreams [None]
  - Back pain [None]
  - Muscle spasms [None]
  - Musculoskeletal pain [None]
  - Alopecia [None]
  - Nightmare [None]
  - Anxiety [None]
  - Hot flush [None]

NARRATIVE: CASE EVENT DATE: 20160801
